FAERS Safety Report 7334184-2 (Version None)
Quarter: 2011Q1

REPORT INFORMATION
  Report Type: 
  Country: None (occurrence: None)
  Receive Date: 20110307
  Receipt Date: 20100104
  Transmission Date: 20110831
  Serious: No
  Sender: FDA-Public Use
  Company Number: US-BAYER-201010329NA

PATIENT
  Sex: Female
  Weight: 52.608 kg

DRUGS (4)
  1. PROPRANOLOL [Concomitant]
     Indication: HEART RATE IRREGULAR
  2. SINGULAIR [Concomitant]
     Indication: ASTHMA
  3. PROPYLTHIOURACIL [Concomitant]
     Indication: THYROID DISORDER
  4. MIRENA [Suspect]
     Indication: CONTRACEPTION
     Dosage: 20 ?G/D, CONT
     Route: 015
     Dates: start: 20090227

REACTIONS (5)
  - POST PROCEDURAL HAEMORRHAGE [None]
  - COMPLICATION OF DEVICE INSERTION [None]
  - DEVICE EXPULSION [None]
  - MEDICAL DEVICE COMPLICATION [None]
  - VAGINAL HAEMORRHAGE [None]
